FAERS Safety Report 13795064 (Version 1)
Quarter: 2017Q3

REPORT INFORMATION
  Report Type: Report from Study
  Country: US (occurrence: US)
  Receive Date: 20170726
  Receipt Date: 20170726
  Transmission Date: 20171127
  Serious: Yes (Other)
  Sender: FDA-Public Use
  Company Number: US-AMGEN-USASL2017110600

PATIENT
  Sex: Female

DRUGS (2)
  1. REPATHA [Suspect]
     Active Substance: EVOLOCUMAB
     Indication: HYPERCHOLESTEROLAEMIA
     Dosage: 420 MG, QMO
     Route: 065
  2. INSULIN [Concomitant]
     Active Substance: INSULIN NOS
     Indication: DIABETES MELLITUS

REACTIONS (9)
  - Ill-defined disorder [Unknown]
  - Cardiac operation [Unknown]
  - Pain in extremity [Unknown]
  - Neuropathy peripheral [Unknown]
  - Arthritis [Not Recovered/Not Resolved]
  - Mental impairment [Unknown]
  - Peripheral swelling [Not Recovered/Not Resolved]
  - Continuous positive airway pressure [Unknown]
  - Weight increased [Unknown]

NARRATIVE: CASE EVENT DATE: 2016
